FAERS Safety Report 23860362 (Version 3)
Quarter: 2024Q3

REPORT INFORMATION
  Report Type: Report from Study
  Country: DE (occurrence: DE)
  Receive Date: 20240515
  Receipt Date: 20240716
  Transmission Date: 20241016
  Serious: Yes (Hospitalization, Other)
  Sender: ABBVIE
  Company Number: DE-ABBVIE-5760670

PATIENT
  Sex: Female

DRUGS (3)
  1. CARBIDOPA\LEVODOPA [Suspect]
     Active Substance: CARBIDOPA\LEVODOPA
     Indication: Parkinson^s disease
     Dosage: MD 9.0 ML; CRD 2.6 ML/H; ED 1.5 ML
     Route: 050
     Dates: start: 20200924
  2. CARBIDOPA\LEVODOPA [Suspect]
     Active Substance: CARBIDOPA\LEVODOPA
  3. ENOXAPARIN SODIUM [Concomitant]
     Active Substance: ENOXAPARIN SODIUM
     Indication: Thrombosis prophylaxis
     Route: 065

REACTIONS (9)
  - Femur fracture [Unknown]
  - Pain in extremity [Unknown]
  - Bone operation [Recovering/Resolving]
  - On and off phenomenon [Not Recovered/Not Resolved]
  - Overdose [Recovered/Resolved]
  - Psychomotor hyperactivity [Unknown]
  - Fall [Unknown]
  - Post procedural haemorrhage [Recovered/Resolved]
  - Wound [Unknown]

NARRATIVE: CASE EVENT DATE: 20240101
